FAERS Safety Report 9714049 (Version 2)
Quarter: 2013Q4

REPORT INFORMATION
  Report Type: Spontaneous
  Country: US (occurrence: US)
  Receive Date: 20131126
  Receipt Date: 20131126
  Transmission Date: 20140711
  Serious: No
  Sender: FDA-Public Use
  Company Number: US-GILEAD-2008-0018597

PATIENT
  Age: 76 Year
  Sex: Male
  Weight: 94.8 kg

DRUGS (14)
  1. LETAIRIS [Suspect]
     Indication: PULMONARY ARTERIAL HYPERTENSION
     Route: 048
     Dates: start: 20080924, end: 20081014
  2. SPIRIVA [Suspect]
  3. DUONEB [Suspect]
  4. ZAROXOLYN [Suspect]
  5. AMIODARONE [Concomitant]
     Indication: ARRHYTHMIA
  6. LESCOL [Concomitant]
  7. ADVAIR [Concomitant]
  8. K-DUR [Concomitant]
  9. LASIX [Concomitant]
  10. COUMADIN [Concomitant]
  11. DIGOXIN [Concomitant]
  12. AVAPRO [Concomitant]
  13. COREG [Concomitant]
  14. LANTUS [Concomitant]

REACTIONS (1)
  - Hepatic enzyme increased [None]
